FAERS Safety Report 10783044 (Version 6)
Quarter: 2015Q2

REPORT INFORMATION
  Report Type: Spontaneous
  Country: FR (occurrence: FR)
  Receive Date: 20150210
  Receipt Date: 20150430
  Transmission Date: 20150821
  Serious: Yes (Hospitalization, Other)
  Sender: FDA-Public Use
  Company Number: FR-PFIZER INC-2015052886

PATIENT
  Age: 64 Year
  Sex: Male

DRUGS (9)
  1. APROVEL [Interacting]
     Active Substance: IRBESARTAN
     Indication: ATRIAL FIBRILLATION
     Dosage: UNK
     Dates: start: 20141006
  2. KARDEGIC [Concomitant]
     Active Substance: ASPIRIN LYSINE
     Dosage: 1 DF, DAILY
     Route: 048
     Dates: end: 20141005
  3. NEURONTIN [Interacting]
     Active Substance: GABAPENTIN
     Indication: NEURALGIA
     Dosage: 600 MG, 3X/DAY
     Route: 048
     Dates: end: 20141005
  4. ELIQUIS [Interacting]
     Active Substance: APIXABAN
     Indication: ATRIAL FIBRILLATION
     Dosage: 10 MG, DAILY
     Route: 048
     Dates: start: 20141006, end: 201502
  5. TENORMIN [Concomitant]
     Active Substance: ATENOLOL
     Dosage: 1 DF, DAILY
     Route: 048
  6. NEURONTIN [Interacting]
     Active Substance: GABAPENTIN
     Dosage: 100 MG, 3X/DAY
     Route: 048
     Dates: start: 201412
  7. NEURONTIN [Interacting]
     Active Substance: GABAPENTIN
     Dosage: 400 MG, 3X/DAY
     Route: 048
     Dates: start: 20141006, end: 201412
  8. ELIQUIS [Interacting]
     Active Substance: APIXABAN
     Dosage: 2.5 MG, 2X/DAY
     Route: 048
     Dates: start: 201502
  9. METFORMIN HCL [Suspect]
     Active Substance: METFORMIN HYDROCHLORIDE
     Dosage: UNK
     Route: 048
     Dates: start: 201407, end: 20141006

REACTIONS (7)
  - Atrial fibrillation [Unknown]
  - Poor quality sleep [Not Recovered/Not Resolved]
  - Gastric disorder [Not Recovered/Not Resolved]
  - Drug interaction [Unknown]
  - Hepatic siderosis [Not Recovered/Not Resolved]
  - Cardiac disorder [Unknown]
  - Iron overload [Not Recovered/Not Resolved]

NARRATIVE: CASE EVENT DATE: 201410
